FAERS Safety Report 17801999 (Version 1)
Quarter: 2020Q2

REPORT INFORMATION
  Report Type: Spontaneous
  Country: US (occurrence: US)
  Receive Date: 20200518
  Receipt Date: 20200518
  Transmission Date: 20200714
  Serious: Yes (Hospitalization)
  Sender: FDA-Public Use
  Company Number: None

PATIENT
  Age: 50 Year
  Sex: Male
  Weight: 117 kg

DRUGS (2)
  1. UDENYCA [Suspect]
     Active Substance: PEGFILGRASTIM-CBQV
     Indication: FEBRILE NEUTROPENIA
     Dosage: ?          OTHER FREQUENCY:ONCE;?
     Route: 058
     Dates: start: 20200508, end: 20200508
  2. CISPLATIN. [Concomitant]
     Active Substance: CISPLATIN
     Dates: start: 20200415, end: 20200506

REACTIONS (3)
  - Electrolyte imbalance [None]
  - Glomerular vascular disorder [None]
  - Leukocytosis [None]

NARRATIVE: CASE EVENT DATE: 20200506
